FAERS Safety Report 5167597-8 (Version None)
Quarter: 2006Q4

REPORT INFORMATION
  Report Type: 
  Country: None (occurrence: None)
  Receive Date: 20060919
  Receipt Date: 20060727
  Transmission Date: 20070319
  Serious: No
  Sender: FDA-Public Use
  Company Number: BDI-008478

PATIENT
  Age: 23 Year
  Sex: Female
  Weight: 66 kg

DRUGS (2)
  1. MULTIHANCE [Suspect]
     Indication: NUCLEAR MAGNETIC RESONANCE IMAGING
     Dosage: 12 ML ONCE SY
     Dates: start: 20060726, end: 20060726
  2. BIRTH CONTROL PILLS [Concomitant]

REACTIONS (3)
  - NAUSEA [None]
  - TACHYCARDIA [None]
  - VOMITING [None]
